FAERS Safety Report 22655239 (Version 1)
Quarter: 2023Q2

REPORT INFORMATION
  Report Type: Spontaneous
  Country: US (occurrence: None)
  Receive Date: 20230628
  Receipt Date: 20230628
  Transmission Date: 20230721
  Serious: Yes (Other)
  Sender: FDA-Public Use
  Company Number: None

PATIENT
  Age: 58 Year
  Sex: Female
  Weight: 78.75 kg

DRUGS (14)
  1. ORENCIA [Suspect]
     Active Substance: ABATACEPT
     Indication: Rheumatoid arthritis
     Dosage: OTHER ROUTE : INJECTION;?
     Route: 050
  2. FLEXERIL [Concomitant]
     Active Substance: CYCLOBENZAPRINE HYDROCHLORIDE
  3. ARMOUR THYROID [Concomitant]
     Active Substance: THYROID, PORCINE
  4. PROMETRIUM [Concomitant]
     Active Substance: PROGESTERONE
  5. ASPIRIN [Concomitant]
     Active Substance: ASPIRIN
  6. TORADOL [Concomitant]
     Active Substance: KETOROLAC TROMETHAMINE
  7. OMEGA 3 [Concomitant]
     Active Substance: CAPSAICIN
  8. VITAMIN D [Concomitant]
     Active Substance: VITAMIN D NOS
  9. CALCIUM [Concomitant]
     Active Substance: CALCIUM
  10. MAGNESIUM [Concomitant]
     Active Substance: MAGNESIUM
  11. VITAMIN B12 [Concomitant]
     Active Substance: CYANOCOBALAMIN
  12. PRASTERONE [Concomitant]
     Active Substance: PRASTERONE
  13. PASSION FLOWER [Concomitant]
     Active Substance: HERBALS\HOMEOPATHICS\PASSIFLORA INCARNATA FLOWER
  14. NATUROPATHIC SLEEP AID [Concomitant]

REACTIONS (8)
  - Dizziness [None]
  - Muscular weakness [None]
  - Discomfort [None]
  - Head discomfort [None]
  - Vibratory sense increased [None]
  - Dysphagia [None]
  - Insomnia [None]
  - Feeling abnormal [None]

NARRATIVE: CASE EVENT DATE: 20221128
